FAERS Safety Report 7153558-6 (Version None)
Quarter: 2010Q4

REPORT INFORMATION
  Report Type: 
  Country: None (occurrence: None)
  Receive Date: 20101209
  Receipt Date: 20101209
  Transmission Date: 20110411
  Serious: Yes (Hospitalization)
  Sender: FDA-Public Use
  Company Number: None

PATIENT
  Age: 71 Year
  Sex: Female
  Weight: 90.7 kg

DRUGS (1)
  1. AUGMENTIN [Suspect]
     Indication: PRODUCT USED FOR UNKNOWN INDICATION
     Dosage: UNKNOWN UNKNOWN
     Dates: start: 20090814, end: 20090824

REACTIONS (5)
  - CHOLELITHIASIS [None]
  - COAGULOPATHY [None]
  - HEPATIC FAILURE [None]
  - JAUNDICE CHOLESTATIC [None]
  - THROMBOCYTOPENIA [None]
